FAERS Safety Report 6357410-5 (Version None)
Quarter: 2009Q3

REPORT INFORMATION
  Report Type: 
  Country: None (occurrence: None)
  Receive Date: 20090916
  Receipt Date: 20090615
  Transmission Date: 20100115
  Serious: No
  Sender: FDA-Public Use
  Company Number: A0791565A

PATIENT
  Age: 65 Year
  Sex: Male

DRUGS (3)
  1. AVANDARYL [Suspect]
     Dosage: 1TAB TWICE PER DAY
     Route: 048
  2. CRESTOR [Concomitant]
  3. AVASTIN (SIMVASTATIN) [Concomitant]

REACTIONS (2)
  - OEDEMA PERIPHERAL [None]
  - VISION BLURRED [None]
